FAERS Safety Report 8604364-4 (Version None)
Quarter: 2012Q3

REPORT INFORMATION
  Report Type: 
  Country: None (occurrence: None)
  Receive Date: 20120820
  Receipt Date: 20120809
  Transmission Date: 20120928
  Serious: Yes (Hospitalization)
  Sender: FDA-Public Use
  Company Number: US-BAYER-2012-082358

PATIENT
  Age: 37 Year
  Sex: Female
  Weight: 98 kg

DRUGS (3)
  1. YASMIN [Suspect]
     Indication: CONTRACEPTION
  2. LORTAB [Concomitant]
  3. DARVOCET [Concomitant]
     Dosage: UNK UNK, PRN
     Dates: start: 20040809

REACTIONS (1)
  - DEEP VEIN THROMBOSIS [None]
